FAERS Safety Report 20319314 (Version 1)
Quarter: 2022Q1

REPORT INFORMATION
  Report Type: Report from Study
  Country: CN (occurrence: CN)
  Receive Date: 20220110
  Receipt Date: 20220110
  Transmission Date: 20220423
  Serious: Yes (Other)
  Sender: FDA-Public Use
  Company Number: CN-OTSUKA-2022_000585

PATIENT
  Age: 79 Year
  Sex: Male

DRUGS (1)
  1. DECITABINE [Suspect]
     Active Substance: DECITABINE
     Indication: Myelodysplastic syndrome
     Dosage: UNK (6 MG/M2,1)
     Route: 065

REACTIONS (4)
  - Liver injury [Unknown]
  - Myelosuppression [Unknown]
  - Off label use [Unknown]
  - Product use issue [Unknown]
